FAERS Safety Report 18277424 (Version 2)
Quarter: 2021Q3

REPORT INFORMATION
  Report Type: Spontaneous
  Country: JP (occurrence: JP)
  Receive Date: 20200917
  Receipt Date: 20210922
  Transmission Date: 20211014
  Serious: Yes (Death, Hospitalization)
  Sender: FDA-Public Use
  Company Number: JP-JNJFOC-A-CH2018-181001

PATIENT
  Age: 86 Year
  Sex: Female

DRUGS (22)
  1. METHYCOBAL [Concomitant]
     Active Substance: METHYLCOBALAMIN
     Indication: SPINAL STENOSIS
     Route: 048
     Dates: start: 20130405
  2. TAKECAB [Concomitant]
     Active Substance: VONOPRAZAN FUMARATE
     Indication: GASTROINTESTINAL HAEMORRHAGE
     Dates: start: 20181024
  3. MAGMITT [Concomitant]
     Active Substance: MAGNESIUM OXIDE
     Indication: CONSTIPATION
     Route: 048
     Dates: start: 20130416
  4. WARFARIN [Suspect]
     Active Substance: WARFARIN
     Route: 050
     Dates: start: 20180706, end: 20181025
  5. LIPIDIL [Concomitant]
     Active Substance: FENOFIBRATE
     Indication: DYSLIPIDAEMIA
     Route: 048
  6. ZETIA [Concomitant]
     Active Substance: EZETIMIBE
     Indication: DYSLIPIDAEMIA
     Route: 048
     Dates: start: 20180426
  7. OXYGEN. [Concomitant]
     Active Substance: OXYGEN
  8. PREDNISOLONE. [Concomitant]
     Active Substance: PREDNISOLONE
     Indication: NEPHROTIC SYNDROME
     Route: 048
     Dates: start: 20171106
  9. OPALMON [Concomitant]
     Active Substance: LIMAPROST
     Indication: SPINAL STENOSIS
     Route: 048
     Dates: start: 20130405
  10. SAMSCA [Concomitant]
     Active Substance: TOLVAPTAN
     Indication: NEPHROTIC SYNDROME
     Route: 048
     Dates: start: 20171227
  11. LIXIANA [Concomitant]
     Active Substance: EDOXABAN TOSYLATE
     Indication: GASTROINTESTINAL HAEMORRHAGE
  12. HUMAN RED BLOOD CELLS [Concomitant]
     Active Substance: HUMAN RED BLOOD CELL
     Indication: ANAEMIA
     Route: 065
     Dates: start: 20180704
  13. WARFARIN [Suspect]
     Active Substance: WARFARIN
     Indication: DEEP VEIN THROMBOSIS
     Dosage: 1.5 MG, QD
     Route: 050
     Dates: start: 20130305, end: 20181025
  14. FEBURIC [Concomitant]
     Active Substance: FEBUXOSTAT
     Indication: HYPERURICAEMIA
     Route: 048
  15. ALFACALCIDOL [Concomitant]
     Active Substance: ALFACALCIDOL
     Indication: CHRONIC KIDNEY DISEASE
     Route: 048
     Dates: start: 20171219
  16. TAKECAB [Concomitant]
     Active Substance: VONOPRAZAN FUMARATE
     Indication: GASTROINTESTINAL HAEMORRHAGE
     Route: 048
     Dates: start: 20181024
  17. OPSUMIT [Suspect]
     Active Substance: MACITENTAN
     Indication: PULMONARY HYPERTENSION
     Dosage: 10 MG, QD IN THE MORNING
     Route: 048
     Dates: start: 20180618, end: 20181114
  18. ETIZOLAM [Concomitant]
     Active Substance: ETIZOLAM
     Indication: SLEEP DISORDER
     Route: 048
     Dates: start: 20130426
  19. FUROSEMIDE. [Concomitant]
     Active Substance: FUROSEMIDE
     Indication: NEPHROTIC SYNDROME
     Route: 048
     Dates: start: 20161022
  20. HUMAN RED BLOOD CELLS [Concomitant]
     Active Substance: HUMAN RED BLOOD CELL
     Route: 065
     Dates: start: 20181012
  21. TIZANIDINE. [Concomitant]
     Active Substance: TIZANIDINE
     Indication: SPINAL STENOSIS
     Route: 048
     Dates: start: 20130426
  22. CALONAL [Concomitant]
     Active Substance: ACETAMINOPHEN
     Indication: SCIATICA
     Route: 048
     Dates: start: 20171219

REACTIONS (8)
  - Pneumonia [Recovered/Resolved]
  - Haematochezia [Recovered/Resolved]
  - Gastrointestinal haemorrhage [Recovered/Resolved]
  - Anaemia [Recovering/Resolving]
  - Transfusion [Unknown]
  - Off label use [Not Recovered/Not Resolved]
  - Nephrotic syndrome [Fatal]
  - Faeces discoloured [Recovered/Resolved]

NARRATIVE: CASE EVENT DATE: 20180626
